FAERS Safety Report 6638757-1 (Version None)
Quarter: 2010Q1

REPORT INFORMATION
  Report Type: 
  Country: None (occurrence: None)
  Receive Date: 20100317
  Receipt Date: 20100304
  Transmission Date: 20100710
  Serious: Yes (Other)
  Sender: FDA-Public Use
  Company Number: US-PFIZER INC-2010024424

PATIENT
  Sex: Female

DRUGS (3)
  1. CHANTIX [Suspect]
     Indication: SMOKING CESSATION THERAPY
     Dosage: UNK
     Route: 048
     Dates: start: 20100218
  2. CHANTIX [Suspect]
     Indication: DEPENDENCE
     Dosage: UNK
     Route: 048
     Dates: start: 20100101
  3. ACIPHEX [Concomitant]

REACTIONS (6)
  - DIZZINESS [None]
  - DRY EYE [None]
  - EYE INFECTION [None]
  - HYPOTENSION [None]
  - ULCERATIVE KERATITIS [None]
  - VISION BLURRED [None]
